FAERS Safety Report 4883401-7 (Version None)
Quarter: 2006Q1

REPORT INFORMATION
  Report Type: 
  Country: None (occurrence: None)
  Receive Date: 20060113
  Receipt Date: 20060104
  Transmission Date: 20060701
  Serious: Yes (Other)
  Sender: FDA-Public Use
  Company Number: 2005165772

PATIENT
  Age: 62 Year
  Sex: Female

DRUGS (1)
  1. DEPO-MEDROL [Suspect]
     Indication: ILL-DEFINED DISORDER
     Dates: end: 20050801

REACTIONS (2)
  - HEPATIC ENZYME INCREASED [None]
  - JAUNDICE [None]
